FAERS Safety Report 24887335 (Version 4)
Quarter: 2025Q2

REPORT INFORMATION
  Report Type: Spontaneous
  Country: PT (occurrence: PT)
  Receive Date: 20250127
  Receipt Date: 20250618
  Transmission Date: 20250717
  Serious: Yes (Hospitalization, Other)
  Sender: ALEXION PHARMACEUTICALS
  Company Number: PT-SA-2025SA021295

PATIENT
  Age: 3 Month
  Weight: 8 kg

DRUGS (3)
  1. NIRSEVIMAB [Suspect]
     Active Substance: NIRSEVIMAB
     Indication: Respiratory syncytial virus immunisation
  2. CHOLECALCIFEROL [Concomitant]
     Active Substance: CHOLECALCIFEROL
     Indication: Supplementation therapy
     Route: 065
  3. (6S)-5-methyltetrahydrofolate;Aesculus hippocastanum;Beta vulgaris;Cit [Concomitant]
     Indication: Supplementation therapy
     Dosage: 1 DROP, QD

REACTIONS (12)
  - Respiratory syncytial virus infection [Not Recovered/Not Resolved]
  - Drug ineffective [Unknown]
  - Incorrect dose administered [Unknown]
  - Respiratory syncytial virus bronchiolitis [Recovered/Resolved]
  - Cough [Recovered/Resolved]
  - Post-tussive vomiting [Recovered/Resolved]
  - Rhinorrhoea [Recovered/Resolved]
  - Hypoxia [Recovered/Resolved]
  - Poor feeding infant [Recovered/Resolved]
  - Neonatal respiratory distress [Recovered/Resolved]
  - Pyrexia [Recovered/Resolved]
  - Dyspnoea [Recovered/Resolved]
